FAERS Safety Report 7919562-2 (Version None)
Quarter: 2011Q4

REPORT INFORMATION
  Report Type: 
  Country: None (occurrence: None)
  Receive Date: 20111116
  Receipt Date: 20111116
  Transmission Date: 20120403
  Serious: Yes (Hospitalization)
  Sender: FDA-Public Use
  Company Number: None

PATIENT
  Age: 85 Year
  Sex: Female
  Weight: 58.6 kg

DRUGS (13)
  1. XANAX [Concomitant]
  2. M.V.I. [Concomitant]
  3. MULTAQ [Suspect]
     Indication: ATRIAL FIBRILLATION
     Dosage: 400MG BID PO CHRONIC
     Route: 048
  4. DIGOXIN [Suspect]
     Indication: ATRIAL FIBRILLATION
     Dosage: CHRONIC
  5. ASPIRIN [Concomitant]
  6. MIRTAZAPINE [Concomitant]
  7. LEXAPRO [Concomitant]
  8. PRILOSEC [Concomitant]
  9. MULTAQ [Concomitant]
  10. CALCIUM [Concomitant]
  11. VALTREX [Concomitant]
  12. LISINOPRIL [Concomitant]
  13. WELLBUTRIN SR [Concomitant]

REACTIONS (6)
  - SOMNOLENCE [None]
  - CARDIOACTIVE DRUG LEVEL INCREASED [None]
  - SEDATION [None]
  - ASTHENIA [None]
  - FALL [None]
  - OVERDOSE [None]
